FAERS Safety Report 25829808 (Version 1)
Quarter: 2025Q3

REPORT INFORMATION
  Report Type: Spontaneous
  Country: US (occurrence: US)
  Receive Date: 20250922
  Receipt Date: 20250922
  Transmission Date: 20251021
  Serious: Yes (Other)
  Sender: INSMED
  Company Number: US-INSMED, INC.-2025-03749-US

PATIENT
  Sex: Male

DRUGS (2)
  1. BRINSUPRI [Suspect]
     Active Substance: BRENSOCATIB
     Indication: Bronchiectasis
     Dosage: 10 MILLIGRAM, QD
     Route: 048
     Dates: start: 2025, end: 2025
  2. BRINSUPRI [Suspect]
     Active Substance: BRENSOCATIB
     Indication: Cystic fibrosis

REACTIONS (2)
  - Atrial fibrillation [Unknown]
  - Dysstasia [Unknown]

NARRATIVE: CASE EVENT DATE: 20250101
